FAERS Safety Report 9845574 (Version 1)
Quarter: 2014Q1

REPORT INFORMATION
  Report Type: Spontaneous
  Country: PT (occurrence: PT)
  Receive Date: 20140127
  Receipt Date: 20140127
  Transmission Date: 20141002
  Serious: Yes (Hospitalization, Other)
  Sender: FDA-Public Use
  Company Number: PT-009507513-1401PRT010521

PATIENT
  Age: 80 Year
  Sex: Female

DRUGS (8)
  1. AERIUS [Suspect]
     Indication: ECZEMA
     Route: 048
     Dates: start: 20130525, end: 20130528
  2. ZYRTEC [Suspect]
     Indication: ECZEMA
     Route: 048
     Dates: start: 20130525, end: 20130528
  3. CONCOR [Concomitant]
     Indication: HYPERTENSION
     Route: 048
  4. SIMVASTATIN [Concomitant]
     Indication: DYSLIPIDAEMIA
     Route: 048
  5. ZOMARIST (METFORMIN HYDROCHLORIDE, VILDAGLIPTIN) [Concomitant]
     Indication: TYPE 2 DIABETES MELLITUS
     Route: 048
  6. PRETERAX (INDAPAMIDE (+) PERINDOPRIL ARGININE) [Concomitant]
     Indication: HYPERTENSION
     Route: 048
  7. ATARAX (HYDROXYZINE HYDROCHLORIDE) [Concomitant]
     Indication: HYPERTENSION
     Route: 048
  8. NORMISON [Concomitant]
     Indication: HYPERTENSION
     Route: 048

REACTIONS (4)
  - Eczema [Recovered/Resolved]
  - Face oedema [Recovered/Resolved]
  - Rash maculo-papular [Recovered/Resolved]
  - Pruritus [Recovered/Resolved]
